FAERS Safety Report 9209328 (Version 1)
Quarter: 2013Q2

REPORT INFORMATION
  Report Type: Spontaneous
  Country: US (occurrence: US)
  Receive Date: 20130404
  Receipt Date: 20130404
  Transmission Date: 20140414
  Serious: Yes (Other)
  Sender: FDA-Public Use
  Company Number: US-PFIZER INC-2013105896

PATIENT
  Age: 81 Year
  Sex: Male
  Weight: 72.6 kg

DRUGS (2)
  1. LYRICA [Suspect]
     Indication: POST HERPETIC NEURALGIA
     Dosage: 50 MG, 1X/DAY
     Route: 048
     Dates: start: 20130308, end: 20130311
  2. LYRICA [Suspect]
     Dosage: 50 MG, 2X/DAY
     Route: 048
     Dates: start: 20130312, end: 20130314

REACTIONS (3)
  - Paralysis [Unknown]
  - Hypokinesia [Unknown]
  - Speech disorder [Unknown]
